FAERS Safety Report 14018991 (Version 1)
Quarter: 2017Q3

REPORT INFORMATION
  Report Type: Spontaneous
  Country: US (occurrence: None)
  Receive Date: 20170928
  Receipt Date: 20170928
  Transmission Date: 20171128
  Serious: Yes (Other)
  Sender: FDA-Public Use
  Company Number: None

PATIENT
  Age: 32 Year
  Sex: Male
  Weight: 81.65 kg

DRUGS (1)
  1. MESALAMINE. [Suspect]
     Active Substance: MESALAMINE
     Indication: CROHN^S DISEASE
     Route: 048
     Dates: start: 20170822, end: 20170912

REACTIONS (8)
  - Diarrhoea [None]
  - Melaena [None]
  - Vomiting [None]
  - Product substitution issue [None]
  - Micturition urgency [None]
  - Dizziness [None]
  - Fall [None]
  - Crohn^s disease [None]
